FAERS Safety Report 4284521-0 (Version None)
Quarter: 2004Q1

REPORT INFORMATION
  Report Type: 
  Country: None (occurrence: None)
  Receive Date: 20040130
  Receipt Date: 20040130
  Transmission Date: 20041129
  Serious: No
  Sender: FDA-Public Use
  Company Number: None

PATIENT
  Sex: Male
  Weight: 52.6173 kg

DRUGS (1)
  1. DEXEDRINE [Suspect]
     Dosage: 15 MG THREE QD
     Dates: start: 20020109

REACTIONS (3)
  - DRUG INEFFECTIVE [None]
  - EDUCATIONAL PROBLEM [None]
  - PHARMACEUTICAL PRODUCT COMPLAINT [None]
